FAERS Safety Report 6882389-7 (Version None)
Quarter: 2010Q3

REPORT INFORMATION
  Report Type: 
  Country: None (occurrence: None)
  Receive Date: 20100727
  Receipt Date: 20100721
  Transmission Date: 20110219
  Serious: Yes (Death)
  Sender: FDA-Public Use
  Company Number: 2010US002796

PATIENT
  Sex: Female

DRUGS (3)
  1. VESICARE [Suspect]
     Indication: PRODUCT USED FOR UNKNOWN INDICATION
     Dosage: ORAL
     Route: 048
  2. ANTIHYPERTENSIVES [Concomitant]
  3. CHEMOTHERAPEUTICS NOS [Concomitant]

REACTIONS (1)
  - OVARIAN CANCER [None]
